FAERS Safety Report 24954949 (Version 1)
Quarter: 2025Q1

REPORT INFORMATION
  Report Type: Spontaneous
  Country: US (occurrence: US)
  Receive Date: 20250211
  Receipt Date: 20250211
  Transmission Date: 20250409
  Serious: Yes (Hospitalization)
  Sender: AMERICAN REGENT
  Company Number: US-AMERICAN REGENT INC-2025000595

PATIENT
  Age: 3 Decade
  Sex: Female

DRUGS (2)
  1. EPINEPHRINE [Suspect]
     Active Substance: EPINEPHRINE
     Indication: Anaphylactic reaction
     Route: 030
  2. EPINEPHRINE [Suspect]
     Active Substance: EPINEPHRINE
     Route: 042

REACTIONS (2)
  - Electrocardiogram ST segment abnormal [Unknown]
  - Off label use [Unknown]
